FAERS Safety Report 5860167-5 (Version None)
Quarter: 2008Q3

REPORT INFORMATION
  Report Type: 
  Country: None (occurrence: None)
  Receive Date: 20080827
  Receipt Date: 20080821
  Transmission Date: 20090109
  Serious: Yes (Other)
  Sender: FDA-Public Use
  Company Number: US-ASTRAZENECA-2008UW17165

PATIENT
  Age: 81 Year
  Sex: Female

DRUGS (3)
  1. CRESTOR [Suspect]
     Indication: BLOOD CHOLESTEROL INCREASED
     Route: 048
     Dates: start: 20070201
  2. HEART MEDICATION [Concomitant]
  3. MEMORY MEDICATION [Concomitant]

REACTIONS (2)
  - LOSS OF CONTROL OF LEGS [None]
  - MUSCLE SPASMS [None]
